FAERS Safety Report 25639619 (Version 3)
Quarter: 2025Q3

REPORT INFORMATION
  Report Type: Spontaneous
  Country: CR (occurrence: CR)
  Receive Date: 20250804
  Receipt Date: 20250923
  Transmission Date: 20251021
  Serious: No
  Sender: PFIZER
  Company Number: CR-PFIZER INC-PV202500088959

PATIENT
  Age: 6 Year
  Sex: Male

DRUGS (1)
  1. GENOTROPIN [Suspect]
     Active Substance: SOMATROPIN
     Dosage: 0.7 MG, DAILY

REACTIONS (5)
  - Device leakage [Unknown]
  - Device use error [Unknown]
  - Device dispensing error [Unknown]
  - Product prescribing issue [Unknown]
  - Device mechanical issue [Unknown]
